FAERS Safety Report 25051084 (Version 1)
Quarter: 2025Q1

REPORT INFORMATION
  Report Type: Report from Study
  Country: US (occurrence: US)
  Receive Date: 20250307
  Receipt Date: 20250307
  Transmission Date: 20250409
  Serious: Yes (Other)
  Sender: UCB
  Company Number: US-UCBSA-2025013062

PATIENT

DRUGS (1)
  1. BIMEKIZUMAB [Suspect]
     Active Substance: BIMEKIZUMAB
     Indication: Psoriatic arthropathy

REACTIONS (3)
  - Psoriatic arthropathy [Unknown]
  - Adverse drug reaction [Unknown]
  - Loss of personal independence in daily activities [Unknown]
